FAERS Safety Report 18988319 (Version 3)
Quarter: 2021Q1

REPORT INFORMATION
  Report Type: Spontaneous
  Country: GR (occurrence: GR)
  Receive Date: 20210309
  Receipt Date: 20210330
  Transmission Date: 20210420
  Serious: Yes (Other)
  Sender: FDA-Public Use
  Company Number: GR-ASTRAZENECA-2021A100393

PATIENT
  Age: 67 Year
  Sex: Female

DRUGS (7)
  1. MONTELUKAST [Concomitant]
     Active Substance: MONTELUKAST SODIUM
  2. FASENRA [Suspect]
     Active Substance: BENRALIZUMAB
     Indication: ASTHMA
     Route: 058
     Dates: start: 20210301
  3. SPIRIVA [Concomitant]
     Active Substance: TIOTROPIUM BROMIDE MONOHYDRATE
  4. DEPON [Concomitant]
     Active Substance: ACETAMINOPHEN
  5. ZIRUS [Concomitant]
  6. FOSTER [Concomitant]
     Active Substance: BECLOMETHASONE\FORMOTEROL
  7. BLOCATENS [Concomitant]
     Active Substance: BISOPROLOL FUMARATE

REACTIONS (3)
  - Tachycardia [Recovered/Resolved]
  - Pyrexia [Recovering/Resolving]
  - Myalgia [Recovered/Resolved]

NARRATIVE: CASE EVENT DATE: 20210301
